FAERS Safety Report 9518695 (Version 2)
Quarter: 2013Q3

REPORT INFORMATION
  Report Type: Report from Study
  Country: NZ (occurrence: NZ)
  Receive Date: 20130912
  Receipt Date: 20130912
  Transmission Date: 20140515
  Serious: Yes (Life-Threatening)
  Sender: FDA-Public Use
  Company Number: PHHY2013NZ064829

PATIENT
  Age: 74 Year
  Sex: Female

DRUGS (4)
  1. CLOZARIL [Suspect]
     Indication: SCHIZOAFFECTIVE DISORDER
     Dosage: UNK
     Dates: start: 20110316
  2. CLOZARIL [Suspect]
     Dosage: 125 MG, QD
     Route: 048
     Dates: start: 201104
  3. LITHIUM [Concomitant]
     Dosage: 10 MG, UNK
  4. CITALOPRAM [Concomitant]
     Indication: AFFECTIVE DISORDER
     Dosage: 200 MG, UNK
     Route: 048

REACTIONS (4)
  - Catatonia [Recovered/Resolved]
  - Psychotic disorder [Recovered/Resolved]
  - Neuroleptic malignant syndrome [Recovered/Resolved]
  - Malaise [Unknown]
